FAERS Safety Report 24130604 (Version 3)
Quarter: 2024Q3

REPORT INFORMATION
  Report Type: Report from Study
  Country: IT (occurrence: IT)
  Receive Date: 20240724
  Receipt Date: 20240830
  Transmission Date: 20241017
  Serious: Yes (Hospitalization)
  Sender: ROCHE
  Company Number: IT-ROCHE-10000026735

PATIENT
  Age: 52 Year
  Sex: Male

DRUGS (2)
  1. OCREVUS [Suspect]
     Active Substance: OCRELIZUMAB
     Indication: Primary progressive multiple sclerosis
     Dosage: LAST TREATMENT 20/APR/2023
     Route: 042
     Dates: start: 20180308
  2. BACLOFEN [Concomitant]
     Active Substance: BACLOFEN

REACTIONS (3)
  - Decubitus ulcer [Recovering/Resolving]
  - Pyrexia [Recovering/Resolving]
  - Sepsis [Recovering/Resolving]

NARRATIVE: CASE EVENT DATE: 20240301
